FAERS Safety Report 5705694-6 (Version None)
Quarter: 2008Q2

REPORT INFORMATION
  Report Type: 
  Country: None (occurrence: None)
  Receive Date: 20080411
  Receipt Date: 20080404
  Transmission Date: 20081010
  Serious: Yes (Hospitalization)
  Sender: FDA-Public Use
  Company Number: 2008S1003784

PATIENT
  Age: 48 Year
  Sex: Female
  Weight: 90.7194 kg

DRUGS (20)
  1. FENTANYL TRANSDERMAL SYSTEM [Suspect]
     Indication: BACK PAIN
     Dosage: 50 UG; EVERY HOUR; TRANSDERMAL
     Route: 062
     Dates: start: 20050101
  2. LEXAPRO [Concomitant]
  3. LYRICA [Concomitant]
  4. PROVIGIL [Concomitant]
  5. TOPAMAX [Concomitant]
  6. NEURONTIN [Concomitant]
  7. SONATA [Concomitant]
  8. XANAX [Concomitant]
  9. PAXIL [Concomitant]
  10. ROZEREM [Concomitant]
  11. LASIX [Concomitant]
  12. POTASSIUM CHLORIDE [Concomitant]
  13. MIRAPEX [Concomitant]
  14. VYTORIN [Concomitant]
  15. LISINOPRIL [Concomitant]
  16. RELAFEN [Concomitant]
  17. ACTIQ [Concomitant]
  18. IMITREX [Concomitant]
  19. VITAMIN K TAB [Concomitant]
  20. FISH OIL [Concomitant]

REACTIONS (9)
  - ABNORMAL BEHAVIOUR [None]
  - AMNESIA [None]
  - BALANCE DISORDER [None]
  - CHOREOATHETOSIS [None]
  - DYSARTHRIA [None]
  - INSOMNIA [None]
  - MOOD ALTERED [None]
  - POISONING [None]
  - SEDATION [None]
